FAERS Safety Report 5340414-9 (Version None)
Quarter: 2007Q2

REPORT INFORMATION
  Report Type: 
  Country: None (occurrence: None)
  Receive Date: 20070405
  Receipt Date: 20061220
  Transmission Date: 20071010
  Serious: No
  Sender: FDA-Public Use
  Company Number: US200612003705

PATIENT
  Age: 66 Year
  Sex: Male

DRUGS (4)
  1. CYMBALTA [Suspect]
     Indication: BACK PAIN
     Dosage: 30 MG, 2/D
     Dates: start: 20061219
  2. METHADONE HCL [Concomitant]
  3. LORTAB [Concomitant]
  4. VALIUM /NET/ (DIAZEPAM) [Concomitant]

REACTIONS (7)
  - APATHY [None]
  - DRUG INEFFECTIVE [None]
  - HEADACHE [None]
  - INFLUENZA LIKE ILLNESS [None]
  - NAUSEA [None]
  - PAIN [None]
  - SOMNOLENCE [None]
